FAERS Safety Report 11175489 (Version 1)
Quarter: 2015Q2

REPORT INFORMATION
  Report Type: Spontaneous
  Country: US (occurrence: None)
  Receive Date: 20150608
  Receipt Date: 20150608
  Transmission Date: 20150821
  Serious: Yes (Disabling)
  Sender: FDA-Public Use
  Company Number: None

PATIENT
  Age: 54 Year
  Sex: Female
  Weight: 71.22 kg

DRUGS (5)
  1. VITAMIN D [Concomitant]
     Active Substance: CHOLECALCIFEROL
  2. ALIVE VITAMINS [Concomitant]
  3. LISINOPRIL. [Concomitant]
     Active Substance: LISINOPRIL
  4. LEVAQUIN [Suspect]
     Active Substance: LEVOFLOXACIN
     Indication: BACTERIAL INFECTION
     Dates: start: 20150526, end: 20150604
  5. VITAMIN C [Concomitant]
     Active Substance: ASCORBIC ACID

REACTIONS (13)
  - Ulcer [None]
  - Hypotension [None]
  - Confusional state [None]
  - Vision blurred [None]
  - Pain [None]
  - Drug ineffective [None]
  - Balance disorder [None]
  - Headache [None]
  - Dizziness [None]
  - Impaired driving ability [None]
  - Disturbance in attention [None]
  - Fall [None]
  - Visual acuity reduced [None]

NARRATIVE: CASE EVENT DATE: 20150601
